FAERS Safety Report 19651970 (Version 6)
Quarter: 2023Q1

REPORT INFORMATION
  Report Type: Spontaneous
  Country: DE (occurrence: DE)
  Receive Date: 20210803
  Receipt Date: 20230207
  Transmission Date: 20230417
  Serious: Yes (Other)
  Sender: FDA-Public Use
  Company Number: NVSC2021DE171870

PATIENT
  Age: 21 Year
  Sex: Male

DRUGS (8)
  1. ETORICOXIB [Suspect]
     Active Substance: ETORICOXIB
     Indication: Hodgkin^s disease
     Dosage: 60 MILLIGRAM, QD, TO BE ADMINISTERED CONTINUOUSLY FROM DAY 1 OF EACH 28-DAY CYCLE
     Route: 048
  2. EVEROLIMUS [Suspect]
     Active Substance: EVEROLIMUS
     Indication: Hodgkin^s disease
     Dosage: 15 MG, QD (15 MILLIGRAM, QD, TO BE ADMINISTERED CONTINUOUSLY FROM DAY 1 OF EACH 28-DAY CYCLE)
     Route: 048
  3. PIOGLITAZONE [Suspect]
     Active Substance: PIOGLITAZONE
     Indication: Hodgkin^s disease
     Dosage: 45 MILLIGRAM, QD, TO BE ADMINISTERED CONTINUOUSLY FROM DAY 1 OF EACH 28-DAY CYCLE
     Route: 048
  4. DEXAMETHASONE [Suspect]
     Active Substance: DEXAMETHASONE
     Indication: Hodgkin^s disease
     Dosage: 0.5 MILLIGRAM, QD, TO BE ADMINISTERED CONTINUOUSLY FROM DAY 1 OF EACH 28-DAY CYCLE
     Route: 048
  5. TROFOSFAMIDE [Suspect]
     Active Substance: TROFOSFAMIDE
     Indication: Hodgkin^s disease
     Dosage: 50 MG, QD
     Route: 048
  6. TROFOSFAMIDE [Suspect]
     Active Substance: TROFOSFAMIDE
     Dosage: 50 MG, QD (INTERRUPTED FOR 10 DAYS AND  RESUMED ON ORIGINAL DOSE LEVEL)
     Route: 048
  7. TREOSULFAN [Suspect]
     Active Substance: TREOSULFAN
     Indication: Hodgkin^s disease
     Dosage: 250 MG, QD, TO BE ADMINISTERED CONTINUOUSLY FROM DAY 1 OF EACH 28-DAY CYCLE
     Route: 048
  8. TREOSULFAN [Suspect]
     Active Substance: TREOSULFAN
     Dosage: 250 MG, QD, (INTERRUPTED FOR 10 DAYS AND  RESUMED ON ORIGINAL DOSE LEVEL)
     Route: 048

REACTIONS (4)
  - Pneumonia bacterial [Unknown]
  - Haematotoxicity [Unknown]
  - Sinusitis [Unknown]
  - Product use in unapproved indication [Unknown]
